FAERS Safety Report 7088801-5 (Version None)
Quarter: 2010Q4

REPORT INFORMATION
  Report Type: 
  Country: None (occurrence: None)
  Receive Date: 20101028
  Receipt Date: 20101012
  Transmission Date: 20110411
  Serious: Yes (Death)
  Sender: FDA-Public Use
  Company Number: UTC-001546

PATIENT
  Age: 79 Year
  Sex: Female
  Weight: 52.27 kg

DRUGS (8)
  1. REMODULIN [Suspect]
     Indication: PULMONARY ARTERIAL HYPERTENSION
     Dosage: 223.632 UG/KG (0.1553 UG/KG, 1 IN 1 MIN), INTRAVENOUS
     Route: 042
     Dates: start: 20080207
  2. FUROSEMIDE [Concomitant]
  3. CALCIUM (CALCIUM) [Concomitant]
  4. VITAMIN D [Concomitant]
  5. VITAMIN B12 [Concomitant]
  6. OMEPRAZOLE [Concomitant]
  7. FERROUS SULFATE TAB [Concomitant]
  8. IMODIUM [Concomitant]

REACTIONS (1)
  - DEATH [None]
